FAERS Safety Report 6651367-5 (Version None)
Quarter: 2010Q1

REPORT INFORMATION
  Report Type: 
  Country: None (occurrence: None)
  Receive Date: 20100325
  Receipt Date: 20100316
  Transmission Date: 20100710
  Serious: Yes (Other)
  Sender: FDA-Public Use
  Company Number: AU-BRISTOL-MYERS SQUIBB COMPANY-15032170

PATIENT
  Sex: Female

DRUGS (2)
  1. STOCRIN TABS [Suspect]
     Route: 064
  2. TRUVADA [Suspect]
     Route: 064

REACTIONS (2)
  - HEPATITIS C [None]
  - HYPOPLASTIC RIGHT HEART SYNDROME [None]
